FAERS Safety Report 17892439 (Version 1)
Quarter: 2020Q2

REPORT INFORMATION
  Report Type: Spontaneous
  Country: US (occurrence: US)
  Receive Date: 20200612
  Receipt Date: 20200612
  Transmission Date: 20200714
  Serious: Yes (Hospitalization)
  Sender: FDA-Public Use
  Company Number: US-ASCEND THERAPEUTICS US, LLC-2085738

PATIENT
  Age: 31 Year
  Sex: Female

DRUGS (15)
  1. DEPO-PROVERA [Suspect]
     Active Substance: MEDROXYPROGESTERONE ACETATE
  2. NUVARING [Suspect]
     Active Substance: ETHINYL ESTRADIOL\ETONOGESTREL
     Route: 067
  3. MORPHINE (MORPHINE), UNKNOWN [Suspect]
     Active Substance: MORPHINE
  4. FENTANYL. [Suspect]
     Active Substance: FENTANYL
  5. DILAUDID [Suspect]
     Active Substance: HYDROMORPHONE HYDROCHLORIDE
  6. ESTROGEL [Suspect]
     Active Substance: ESTRADIOL
     Indication: PRODUCT USED FOR UNKNOWN INDICATION
  7. PERCOCET [Suspect]
     Active Substance: ACETAMINOPHEN\OXYCODONE HYDROCHLORIDE
  8. LUPRON [Suspect]
     Active Substance: LEUPROLIDE ACETATE
  9. ESTROGENS (ESTROGENS) (ESTROGENS NOS), UNKNOWN [Suspect]
     Active Substance: ESTROGENS
  10. ESTROGEL [Suspect]
     Active Substance: ESTRADIOL
  11. ESTRADIOL. [Suspect]
     Active Substance: ESTRADIOL
  12. NEXPLANON [Suspect]
     Active Substance: ETONOGESTREL
     Route: 059
  13. SUBOXONE [Suspect]
     Active Substance: BUPRENORPHINE HYDROCHLORIDE\NALOXONE HYDROCHLORIDE
  14. HYDROCODONE/APAP (PARACETAMOL, HYDROCODONE BITARTRATE), UNKNOWN [Suspect]
     Active Substance: ACETAMINOPHEN\HYDROCODONE BITARTRATE
  15. VICODIN [Suspect]
     Active Substance: ACETAMINOPHEN\HYDROCODONE BITARTRATE

REACTIONS (9)
  - Vitamin B12 deficiency [Unknown]
  - Ligament rupture [Unknown]
  - Vomiting [Unknown]
  - Tenoplasty [Unknown]
  - Foot fracture [Unknown]
  - Hysterectomy [Unknown]
  - Abdominal pain [Unknown]
  - Endometriosis [Unknown]
  - Appendicectomy [Unknown]

NARRATIVE: CASE EVENT DATE: 20200310
